FAERS Safety Report 14336155 (Version 1)
Quarter: 2017Q4

REPORT INFORMATION
  Report Type: Spontaneous
  Country: US (occurrence: US)
  Receive Date: 20171229
  Receipt Date: 20171229
  Transmission Date: 20180321
  Serious: No
  Sender: FDA-Public Use
  Company Number: US-JNJFOC-20151109988

PATIENT
  Age: 40 Year
  Sex: Male
  Weight: 100 kg

DRUGS (3)
  1. PREZISTA [Suspect]
     Active Substance: DARUNAVIR ETHANOLATE
     Indication: HIV INFECTION
     Dosage: STRENGTH: 800 MG
     Route: 048
     Dates: start: 2015
  2. RITONAVIR. [Concomitant]
     Active Substance: RITONAVIR
     Route: 065
  3. TRUVADA [Concomitant]
     Active Substance: EMTRICITABINE\TENOFOVIR DISOPROXIL FUMARATE
     Route: 065

REACTIONS (2)
  - Viraemia [Unknown]
  - Drug ineffective [Unknown]
